FAERS Safety Report 10949286 (Version 1)
Quarter: 2015Q1

REPORT INFORMATION
  Report Type: Spontaneous
  Country: US (occurrence: None)
  Receive Date: 20150323
  Receipt Date: 20150323
  Transmission Date: 20150721
  Serious: No
  Sender: FDA-Public Use
  Company Number: None

PATIENT
  Age: 66 Year
  Sex: Male
  Weight: 71.67 kg

DRUGS (1)
  1. ELIQUIS [Suspect]
     Active Substance: APIXABAN
     Indication: THROMBOSIS PROPHYLAXIS
     Dosage: 2 PILLS
     Route: 048
     Dates: start: 20150319, end: 20150320

REACTIONS (3)
  - Diarrhoea [None]
  - Rash [None]
  - Bradycardia [None]

NARRATIVE: CASE EVENT DATE: 20150319
